FAERS Safety Report 15352761 (Version 1)
Quarter: 2018Q3

REPORT INFORMATION
  Report Type: Spontaneous
  Country: CA (occurrence: CA)
  Receive Date: 20180905
  Receipt Date: 20180905
  Transmission Date: 20181010
  Serious: Yes (Other)
  Sender: FDA-Public Use
  Company Number: PHHY2018CA084285

PATIENT
  Sex: Female

DRUGS (1)
  1. TIMOLOL MALEATE EX [Suspect]
     Active Substance: TIMOLOL MALEATE
     Indication: PRODUCT USED FOR UNKNOWN INDICATION
     Dosage: UNK, QD (1 DROP IN EACH EYE EVERY MORNING)
     Route: 065

REACTIONS (2)
  - Ocular hyperaemia [Unknown]
  - Cardiac disorder [Unknown]
